FAERS Safety Report 5079300-0 (Version None)
Quarter: 2006Q3

REPORT INFORMATION
  Report Type: 
  Country: None (occurrence: None)
  Receive Date: 20060808
  Receipt Date: 20060724
  Transmission Date: 20061208
  Serious: Yes (Death)
  Sender: FDA-Public Use
  Company Number: 2006S1006864

PATIENT
  Age: 41 Year
  Sex: Male

DRUGS (1)
  1. FENTANYL TRANSDERMAL SYSTEM [Suspect]
     Indication: PAIN
     Dosage: 50 UG/HR; TDER
     Route: 062
     Dates: start: 20050726

REACTIONS (1)
  - LOSS OF CONSCIOUSNESS [None]
